FAERS Safety Report 12124951 (Version 5)
Quarter: 2016Q2

REPORT INFORMATION
  Report Type: Report from Study
  Country: ES (occurrence: ES)
  Receive Date: 20160229
  Receipt Date: 20160415
  Transmission Date: 20160815
  Serious: Yes (Hospitalization, Other)
  Sender: FDA-Public Use
  Company Number: ES-VIIV HEALTHCARE LIMITED-ES2016007861

PATIENT
  Age: 55 Year
  Sex: Female
  Weight: 78.8 kg

DRUGS (8)
  1. AZITHROMYCIN ANHYDROUS. [Concomitant]
     Active Substance: AZITHROMYCIN ANHYDROUS
     Indication: BRONCHITIS
     Dosage: 500 MG, 1D
     Route: 048
     Dates: start: 20160114, end: 20160119
  2. PREDNISONA [Concomitant]
     Active Substance: PREDNISONE
     Indication: BRONCHITIS
     Dosage: 30 MG, 1D
     Route: 048
     Dates: start: 20160114, end: 20160116
  3. RILPIVIRINE [Suspect]
     Active Substance: RILPIVIRINE
     Indication: HIV INFECTION
     Dosage: 25 MG, UNK
     Route: 048
     Dates: start: 20150625, end: 20160223
  4. CEFUROXIMA [Concomitant]
     Indication: BRONCHITIS
     Dosage: 500 MG, BID
     Route: 048
     Dates: start: 20160114, end: 20160120
  5. DOLUTEGRAVIR [Suspect]
     Active Substance: DOLUTEGRAVIR
     Indication: HIV INFECTION
     Dosage: 50 MG, UNK
     Route: 048
     Dates: start: 20150625, end: 20160223
  6. FLURAZEPAM [Concomitant]
     Active Substance: FLURAZEPAM\FLURAZEPAM HYDROCHLORIDE
     Dosage: 30 MG, 1D
     Route: 048
     Dates: start: 20160131, end: 20160208
  7. SERETIDE [Concomitant]
     Active Substance: FLUTICASONE PROPIONATE\SALMETEROL XINAFOATE
     Indication: BRONCHITIS
     Dosage: 1 APPLICATION(S), BID
     Route: 055
     Dates: start: 20160114, end: 20160118
  8. RANITIDINE. [Concomitant]
     Active Substance: RANITIDINE
     Dosage: 300 G, 1D
     Route: 048
     Dates: start: 20160120, end: 20160120

REACTIONS (1)
  - Eosinophilic pneumonia acute [Not Recovered/Not Resolved]

NARRATIVE: CASE EVENT DATE: 20160105
